FAERS Safety Report 5922491-7 (Version None)
Quarter: 2008Q4

REPORT INFORMATION
  Report Type: 
  Country: None (occurrence: None)
  Receive Date: 20081017
  Receipt Date: 20081007
  Transmission Date: 20090506
  Serious: Yes (Hospitalization, Other)
  Sender: FDA-Public Use
  Company Number: PHHY2008DE22495

PATIENT
  Sex: Female

DRUGS (7)
  1. RASILEZ [Suspect]
     Dosage: 300 MG, QD
     Route: 048
     Dates: start: 20080226
  2. EXFORGE [Suspect]
     Indication: HYPERTENSION
     Dosage: 1 TABLET DAILY
     Route: 048
     Dates: start: 20080704
  3. ACETYLSALICYLIC ACID SRT [Concomitant]
     Indication: ANTICOAGULANT THERAPY
     Dosage: 100 MG/DAY
     Route: 048
  4. TEBONIN [Concomitant]
     Dosage: 120 MG/DAY
     Route: 048
  5. EUSOVIT ^STRATHMANN^ [Concomitant]
     Indication: VITAMIN SUPPLEMENTATION
     Dosage: 300 MG/DAY
     Route: 048
  6. MAGNESIUM SULFATE [Concomitant]
     Indication: MUSCLE SPASMS
     Dosage: UNK
     Route: 048
  7. EBRANTIL [Concomitant]
     Indication: HYPERTENSION
     Dosage: UNK
     Route: 048

REACTIONS (3)
  - BRADYCARDIA [None]
  - DEHYDRATION [None]
  - HYPERKALAEMIA [None]
